FAERS Safety Report 11504953 (Version 1)
Quarter: 2015Q3

REPORT INFORMATION
  Report Type: Spontaneous
  Country: US (occurrence: US)
  Receive Date: 20150915
  Receipt Date: 20150915
  Transmission Date: 20151125
  Serious: No
  Sender: FDA-Public Use
  Company Number: US-ROCHE-712837

PATIENT
  Age: 54 Year
  Sex: Female
  Weight: 57.2 kg

DRUGS (2)
  1. PEGASYS [Suspect]
     Active Substance: PEGINTERFERON ALFA-2A
     Indication: HEPATITIS C
     Dosage: FORM: PRE FILLED SYRINGE
     Route: 058
  2. RIBASPHERE [Suspect]
     Active Substance: RIBAVIRIN
     Indication: HEPATITIS C
     Dosage: IN DIVIDED DOSES
     Route: 048

REACTIONS (7)
  - Blood count abnormal [Not Recovered/Not Resolved]
  - Speech disorder [Unknown]
  - Gingival bleeding [Not Recovered/Not Resolved]
  - Oropharyngeal pain [Unknown]
  - Increased upper airway secretion [Not Recovered/Not Resolved]
  - Gingival swelling [Unknown]
  - Procedural complication [Unknown]

NARRATIVE: CASE EVENT DATE: 20100601
